FAERS Safety Report 19823381 (Version 1)
Quarter: 2021Q3

REPORT INFORMATION
  Report Type: Spontaneous
  Country: US (occurrence: US)
  Receive Date: 20210913
  Receipt Date: 20210913
  Transmission Date: 20211014
  Serious: No
  Sender: FDA-Public Use
  Company Number: US-GALDERMA-US2021015883

PATIENT

DRUGS (5)
  1. PROACTIV PORE PURIFYING NOSE STRIP [Concomitant]
     Indication: ACNE
     Dosage: 1 DOSAGE FORM, UNKNOWN
     Route: 061
     Dates: start: 20210708, end: 20210808
  2. PROACTIV ACNE BODY WASH [Concomitant]
     Active Substance: SALICYLIC ACID
     Indication: ACNE
     Dosage: 1 DOSAGE FORM, UNKNOWN
     Route: 061
     Dates: start: 20210708, end: 20210808
  3. PROACTIV MD ULTRA HYDRATING MOISTURIZER [Concomitant]
     Indication: ACNE
     Dosage: 1 DOSAGE FORM, UNKNOWN
     Route: 061
     Dates: start: 20210708, end: 20210808
  4. PROACTIV MD ADAPALENE ACNE TREATMENT [Suspect]
     Active Substance: ADAPALENE
     Indication: ACNE
     Dosage: 1 DOSAGE FORM, UNKNOWN
     Route: 061
     Dates: start: 20210708, end: 20210808
  5. PROACTIV MD ULTRA GENTLE CLEANSER [Concomitant]
     Indication: ACNE
     Dosage: 1 DOSAGE FORM, UNKNOWN
     Route: 061
     Dates: start: 20210708, end: 20210808

REACTIONS (2)
  - Skin burning sensation [Unknown]
  - Acne [Unknown]

NARRATIVE: CASE EVENT DATE: 20210710
